FAERS Safety Report 4313887-8 (Version None)
Quarter: 2004Q1

REPORT INFORMATION
  Report Type: 
  Country: None (occurrence: None)
  Receive Date: 20040302
  Receipt Date: 20031021
  Transmission Date: 20041129
  Serious: Yes (Hospitalization)
  Sender: FDA-Public Use
  Company Number: US012057

PATIENT
  Age: 31 Year
  Sex: Male

DRUGS (1)
  1. GABITRIL [Suspect]
     Dosage: 80 MG ONCE ORAL
     Route: 048
     Dates: start: 20031021, end: 20031021

REACTIONS (2)
  - AGGRESSION [None]
  - OVERDOSE [None]
